FAERS Safety Report 11649027 (Version 1)
Quarter: 2015Q4

REPORT INFORMATION
  Report Type: Spontaneous
  Country: JP (occurrence: JP)
  Receive Date: 20151021
  Receipt Date: 20151021
  Transmission Date: 20160304
  Serious: Yes (Disabling, Other)
  Sender: FDA-Public Use
  Company Number: JP-PFIZER INC-2015250268

PATIENT
  Age: 43 Year
  Sex: Male

DRUGS (2)
  1. LYRICA [Suspect]
     Active Substance: PREGABALIN
     Indication: COMPLEX REGIONAL PAIN SYNDROME
     Dosage: 600 MG, 2X/DAY
     Route: 048
     Dates: start: 201012, end: 201405
  2. MORPHINE HYDROCHLORIDE TRIHYDRATE [Concomitant]
     Dosage: 120 MG, 4X/DAY
     Route: 048
     Dates: start: 200408, end: 201403

REACTIONS (3)
  - Product use issue [Unknown]
  - Vision blurred [Unknown]
  - Cataract [Not Recovered/Not Resolved]

NARRATIVE: CASE EVENT DATE: 201012
